FAERS Safety Report 9878265 (Version 2)
Quarter: 2014Q1

REPORT INFORMATION
  Report Type: Spontaneous
  Country: US (occurrence: US)
  Receive Date: 20140206
  Receipt Date: 20140227
  Transmission Date: 20141002
  Serious: Yes (Death, Other)
  Sender: FDA-Public Use
  Company Number: US-PFIZER INC-2014031992

PATIENT
  Age: 53 Year
  Sex: Female
  Weight: 95.24 kg

DRUGS (11)
  1. MS CONTIN [Suspect]
     Indication: NECK PAIN
     Dosage: 15 MG, 3X/DAY
     Route: 048
     Dates: start: 20131014
  2. MS CONTIN [Suspect]
     Indication: POSTOPERATIVE ANALGESIA
  3. NORCO [Suspect]
     Indication: BREAKTHROUGH PAIN
     Dosage: 10 MG, QID PRN
     Route: 048
  4. NORCO [Suspect]
     Indication: POSTOPERATIVE ANALGESIA
     Dosage: 10 MG, Q6H PRN
     Route: 048
  5. HYDROCODONE [Suspect]
     Dosage: UNK
  6. CLONAZEPAM [Suspect]
     Dosage: UNK
  7. TEMAZEPAM [Suspect]
     Dosage: UNK
  8. CYCLOBENZAPRINE [Concomitant]
     Dosage: UNK
  9. OMEPRAZOLE [Concomitant]
     Dosage: UNK
  10. TOPIRAMATE [Concomitant]
     Dosage: UNK
  11. VENLAFAXINE [Concomitant]
     Dosage: UNK

REACTIONS (4)
  - Overdose [Fatal]
  - Aspiration [Fatal]
  - Cervical spinal stenosis [Unknown]
  - Drug intolerance [Unknown]
